FAERS Safety Report 14632539 (Version 2)
Quarter: 2019Q4

REPORT INFORMATION
  Report Type: Report from Study
  Country: US (occurrence: US)
  Receive Date: 20180313
  Receipt Date: 20191216
  Transmission Date: 20200122
  Serious: No
  Sender: FDA-Public Use
  Company Number: PHEH2018US009878

PATIENT
  Age: 67 Year
  Sex: Female

DRUGS (1)
  1. COSENTYX [Suspect]
     Active Substance: SECUKINUMAB
     Indication: PSORIASIS
     Dosage: 300 MG, QMO
     Route: 058

REACTIONS (7)
  - Muscle spasms [Unknown]
  - Arthralgia [Unknown]
  - Pain in extremity [Unknown]
  - Blister [Unknown]
  - Psoriasis [Unknown]
  - Joint swelling [Unknown]
  - Sleep disorder [Unknown]

NARRATIVE: CASE EVENT DATE: 20180301
